FAERS Safety Report 5955374-7 (Version None)
Quarter: 2008Q4

REPORT INFORMATION
  Report Type: 
  Country: None (occurrence: None)
  Receive Date: 20081112
  Receipt Date: 20081027
  Transmission Date: 20090506
  Serious: Yes (Disabling)
  Sender: FDA-Public Use
  Company Number: 20503

PATIENT
  Age: 48 Year
  Sex: Female
  Weight: 84 kg

DRUGS (5)
  1. CARBOPLATIN [Suspect]
     Indication: OVARIAN CANCER
     Dosage: 750 MG FREQ IV
     Route: 042
     Dates: start: 20080429
  2. PACLITAXEL [Concomitant]
  3. VENTOLIN [Concomitant]
  4. GRANISETRON [Concomitant]
  5. DEXAMETHASONE [Concomitant]

REACTIONS (2)
  - DRUG HYPERSENSITIVITY [None]
  - VERTIGO [None]
